FAERS Safety Report 9803399 (Version 1)
Quarter: 2014Q1

REPORT INFORMATION
  Report Type: Spontaneous
  Country: US (occurrence: None)
  Receive Date: 20140107
  Receipt Date: 20140107
  Transmission Date: 20141002
  Serious: Yes (Hospitalization)
  Sender: FDA-Public Use
  Company Number: None

PATIENT
  Age: 81 Year
  Sex: Female
  Weight: 87.7 kg

DRUGS (1)
  1. ZOSYN 3.375 GM PFIZER [Suspect]
     Indication: SEPSIS
     Route: 042

REACTIONS (1)
  - Platelet count decreased [None]
